FAERS Safety Report 9832057 (Version 2)
Quarter: 2014Q1

REPORT INFORMATION
  Report Type: Report from Study
  Country: AU (occurrence: AU)
  Receive Date: 20140121
  Receipt Date: 20140129
  Transmission Date: 20141002
  Serious: Yes (Death, Other)
  Sender: FDA-Public Use
  Company Number: AU-PFIZER INC-2014012904

PATIENT
  Age: 44 Year
  Sex: Female

DRUGS (4)
  1. IBUPROFEN [Suspect]
     Dosage: UNK
  2. FUROSEMIDE [Suspect]
     Dosage: UNK
  3. DULOXETINE [Suspect]
     Dosage: UNK
  4. TETRAHYDROCANNABINOL [Suspect]
     Dosage: UNK

REACTIONS (2)
  - Toxicity to various agents [Fatal]
  - Intestinal ischaemia [Fatal]
